FAERS Safety Report 6152652-6 (Version None)
Quarter: 2009Q2

REPORT INFORMATION
  Report Type: 
  Country: None (occurrence: None)
  Receive Date: 20090413
  Receipt Date: 20090406
  Transmission Date: 20091009
  Serious: Yes (Death, Other)
  Sender: FDA-Public Use
  Company Number: CN-ROCHE-625945

PATIENT
  Age: 48 Year
  Sex: Female

DRUGS (2)
  1. MYCOPHENOLATE MOFETIL [Suspect]
     Indication: DRUG USE FOR UNKNOWN INDICATION
     Route: 065
     Dates: start: 20060301, end: 20060601
  2. EPOETIN BETA [Suspect]
     Route: 058

REACTIONS (3)
  - APLASIA PURE RED CELL [None]
  - HEPATIC FAILURE [None]
  - SEPTIC SHOCK [None]
